FAERS Safety Report 5692929-1 (Version None)
Quarter: 2008Q2

REPORT INFORMATION
  Report Type: 
  Country: None (occurrence: None)
  Receive Date: 20080325
  Receipt Date: 20080108
  Transmission Date: 20081010
  Serious: Yes (Hospitalization)
  Sender: FDA-Public Use
  Company Number: 14034532

PATIENT
  Sex: Female
  Weight: 72.56 kg

DRUGS (11)
  1. EMSAM [Suspect]
     Indication: DEPRESSION
     Dosage: 12 MILLIGRAM,1/24 HOUR TD
     Dates: start: 20070301
  2. MIDRIN [Suspect]
     Indication: DEPRESSION
     Dosage: 10 MILLIGRAM,1 DAY
     Dates: start: 20070725
  3. ADVAIR DISKUS 100/50 [Concomitant]
  4. ASPIRIN [Concomitant]
  5. PLAVIX [Concomitant]
  6. LIPITOR [Concomitant]
  7. NEXIUM [Concomitant]
  8. LORAZEPAM [Concomitant]
  9. PROVIGIL [Concomitant]
  10. NITROGLYCERIN [Concomitant]
  11. VICODIN [Concomitant]

REACTIONS (7)
  - BLOOD PRESSURE FLUCTUATION [None]
  - DEHYDRATION [None]
  - DIZZINESS [None]
  - FALL [None]
  - HYPERTENSION [None]
  - INFLUENZA LIKE ILLNESS [None]
  - LOSS OF CONSCIOUSNESS [None]
